FAERS Safety Report 5883929-7 (Version None)
Quarter: 2008Q3

REPORT INFORMATION
  Report Type: 
  Country: None (occurrence: None)
  Receive Date: 20080915
  Receipt Date: 20080909
  Transmission Date: 20090109
  Serious: Yes (Death, Other)
  Sender: FDA-Public Use
  Company Number: JP-BAYER-200812102BYL

PATIENT
  Age: 76 Year
  Sex: Female

DRUGS (13)
  1. FLUDARA [Suspect]
     Indication: FOLLICLE CENTRE LYMPHOMA, FOLLICULAR GRADE I, II, III STAGE IV
  2. RITUXAN [Suspect]
     Indication: FOLLICLE CENTRE LYMPHOMA, FOLLICULAR GRADE I, II, III STAGE IV
  3. MAXIPIME [Concomitant]
     Indication: BRONCHITIS
     Route: 042
     Dates: start: 20080313, end: 20080327
  4. POLARAMINE [Concomitant]
     Indication: PREMEDICATION
     Route: 048
     Dates: start: 20080324, end: 20080324
  5. VOLTAREN [Concomitant]
     Indication: PREMEDICATION
     Route: 048
     Dates: start: 20080324, end: 20080324
  6. LANSOPRAZOLE [Concomitant]
     Indication: REFLUX OESOPHAGITIS
     Route: 048
     Dates: start: 20080322, end: 20080610
  7. DOGMATYL [Concomitant]
     Indication: DEPRESSION
     Route: 048
     Dates: end: 20080610
  8. PRAVASTATIN SODIUM [Concomitant]
     Indication: HYPERLIPIDAEMIA
     Route: 048
     Dates: end: 20080610
  9. FLUITRAN [Concomitant]
     Indication: HYPERTENSION
     Dosage: UNIT DOSE: 2 MG
     Route: 048
     Dates: end: 20080610
  10. MAGNESIUM OXIDE [Concomitant]
     Indication: CONSTIPATION
     Route: 048
     Dates: start: 20080225, end: 20080610
  11. NOVAMIN [Concomitant]
     Indication: NAUSEA
     Route: 048
     Dates: start: 20080225, end: 20080413
  12. BONALON [Concomitant]
     Route: 048
     Dates: start: 20080303, end: 20080610
  13. OXYCONTIN [Concomitant]
     Indication: BONE PAIN
     Dosage: UNIT DOSE: 5 MG
     Route: 048
     Dates: start: 20080221, end: 20080413

REACTIONS (3)
  - DEATH [None]
  - PNEUMONIA ASPIRATION [None]
  - WHITE BLOOD CELL COUNT DECREASED [None]
